FAERS Safety Report 16526355 (Version 1)
Quarter: 2019Q3

REPORT INFORMATION
  Report Type: Spontaneous
  Country: DE (occurrence: DE)
  Receive Date: 20190703
  Receipt Date: 20190703
  Transmission Date: 20191004
  Serious: Yes (Other)
  Sender: FDA-Public Use
  Company Number: DE-ACCORD-136451

PATIENT
  Age: 67 Year
  Sex: Female
  Weight: 68 kg

DRUGS (5)
  1. DEXAMETHASONE. [Concomitant]
     Active Substance: DEXAMETHASONE
     Indication: PREMEDICATION
     Dosage: PREMEDICATION 30 MINUTES BEFORE CHEMOTHERAPY
     Route: 042
     Dates: start: 20190603
  2. PACLITAXEL/PACLITAXEL LIPOSOME [Suspect]
     Active Substance: PACLITAXEL
     Indication: PRODUCT USED FOR UNKNOWN INDICATION
     Dosage: REACTION OCCURRED AFTER 10 MINUTES AT?250 ML / H
     Route: 042
     Dates: start: 20190603
  3. RANITIDINE. [Concomitant]
     Active Substance: RANITIDINE
     Indication: PREMEDICATION
     Dosage: PREMEDICATION 30 MIN. BEFORE THE CHEMOTHERAPY
     Route: 042
     Dates: start: 20190603
  4. CLEMASTINE/CLEMASTINE FUMARATE [Concomitant]
     Indication: PREMEDICATION
     Dosage: PREMEDICATION 30 MINUTES BEFORE CHEMOTHERAPY
     Route: 042
     Dates: start: 20190603
  5. ALOXI [Concomitant]
     Active Substance: PALONOSETRON HYDROCHLORIDE
     Route: 042
     Dates: start: 20190603

REACTIONS (7)
  - Frequent bowel movements [Recovered/Resolved]
  - Anal incontinence [Recovered/Resolved]
  - Vomiting [Recovered/Resolved]
  - Blood pressure decreased [Recovered/Resolved]
  - Loss of consciousness [Recovered/Resolved]
  - Restlessness [Recovered/Resolved]
  - Nausea [Recovered/Resolved]

NARRATIVE: CASE EVENT DATE: 20190603
